FAERS Safety Report 17178382 (Version 1)
Quarter: 2019Q4

REPORT INFORMATION
  Report Type: Spontaneous
  Country: US (occurrence: US)
  Receive Date: 20191219
  Receipt Date: 20191219
  Transmission Date: 20200122
  Serious: No
  Sender: FDA-Public Use
  Company Number: US-ASTRAZENECA-2019SF68446

PATIENT
  Sex: Female

DRUGS (7)
  1. FARXIGA [Suspect]
     Active Substance: DAPAGLIFLOZIN PROPANEDIOL
     Indication: BLOOD GLUCOSE FLUCTUATION
     Route: 048
     Dates: start: 20191107
  2. GLIMEPIRIDE. [Concomitant]
     Active Substance: GLIMEPIRIDE
  3. FARXIGA [Suspect]
     Active Substance: DAPAGLIFLOZIN PROPANEDIOL
     Indication: GLYCOSYLATED HAEMOGLOBIN DECREASED
     Route: 048
     Dates: start: 20191107
  4. CLOTRIMAZOLE. [Concomitant]
     Active Substance: CLOTRIMAZOLE
  5. BETAMETHASONE. [Concomitant]
     Active Substance: BETAMETHASONE
  6. FLUCONAZOLE. [Concomitant]
     Active Substance: FLUCONAZOLE
     Dosage: 150.0MG UNKNOWN
  7. METFORMIN [Concomitant]
     Active Substance: METFORMIN HYDROCHLORIDE

REACTIONS (6)
  - Blood cholesterol increased [Unknown]
  - Vulvovaginal pruritus [Unknown]
  - Vaginal haemorrhage [Unknown]
  - Vulvovaginal swelling [Unknown]
  - Vulvovaginal discomfort [Unknown]
  - Vulvovaginal pain [Unknown]
